FAERS Safety Report 8499160-5 (Version None)
Quarter: 2012Q2

REPORT INFORMATION
  Report Type: 
  Country: None (occurrence: None)
  Receive Date: 20120627
  Receipt Date: 20120612
  Transmission Date: 20120825
  Serious: Yes (Hospitalization)
  Sender: FDA-Public Use
  Company Number: THQ2012A05189

PATIENT
  Age: 45 Year
  Sex: Male

DRUGS (1)
  1. PIOGLITAZONE HYDROCHLORIDE [Suspect]
     Indication: TYPE 2 DIABETES MELLITUS
     Dosage: PER ORAL
     Route: 048

REACTIONS (2)
  - DRUG HYPERSENSITIVITY [None]
  - URTICARIA [None]
